FAERS Safety Report 8481521-1 (Version None)
Quarter: 2012Q3

REPORT INFORMATION
  Report Type: 
  Country: None (occurrence: None)
  Receive Date: 20120702
  Receipt Date: 20120621
  Transmission Date: 20120928
  Serious: Yes (Hospitalization)
  Sender: FDA-Public Use
  Company Number: US-ASTRAZENECA-2012SE05792

PATIENT
  Age: 78 Year
  Sex: Female

DRUGS (3)
  1. AVAPRO [Concomitant]
  2. TOPROL-XL [Suspect]
     Route: 048
  3. PLAVIX [Concomitant]

REACTIONS (2)
  - HYPERTENSION [None]
  - HIP FRACTURE [None]
